FAERS Safety Report 14376684 (Version 1)
Quarter: 2018Q1

REPORT INFORMATION
  Report Type: Spontaneous
  Country: US (occurrence: US)
  Receive Date: 20180110
  Receipt Date: 20180110
  Transmission Date: 20180509
  Serious: Yes (Hospitalization)
  Sender: FDA-Public Use
  Company Number: None

PATIENT
  Age: 94 Year
  Sex: Male
  Weight: 62.73 kg

DRUGS (2)
  1. SPIRONOLACTONE. [Suspect]
     Active Substance: SPIRONOLACTONE
     Indication: HYPERTENSION
     Dosage: AM
     Route: 048
     Dates: start: 20170709, end: 20170727
  2. TRANDOLAPRIL. [Suspect]
     Active Substance: TRANDOLAPRIL
     Indication: HYPERTENSION
     Route: 048
     Dates: start: 20170330, end: 20170727

REACTIONS (5)
  - Blood creatinine increased [None]
  - Myalgia [None]
  - Fatigue [None]
  - Hyperkalaemia [None]
  - Muscle spasms [None]

NARRATIVE: CASE EVENT DATE: 20170726
